FAERS Safety Report 7527634-X (Version None)
Quarter: 2011Q2

REPORT INFORMATION
  Report Type: 
  Country: None (occurrence: None)
  Receive Date: 20110607
  Receipt Date: 20110525
  Transmission Date: 20111010
  Serious: Yes (Death)
  Sender: FDA-Public Use
  Company Number: GB-RANBAXY-2011R1-44861

PATIENT
  Sex: Female

DRUGS (4)
  1. CARBAMAZEPINE [Suspect]
     Indication: EPILEPSY
     Route: 065
  2. TOPIRAMATE [Suspect]
     Indication: EPILEPSY
     Route: 048
  3. PHENOBARBITAL TAB [Suspect]
     Indication: EPILEPSY
     Route: 065
  4. VALPROIC ACID [Suspect]
     Indication: EPILEPSY
     Route: 065

REACTIONS (1)
  - STATUS EPILEPTICUS [None]
